FAERS Safety Report 19004187 (Version 1)
Quarter: 2021Q1

REPORT INFORMATION
  Report Type: Report from Study
  Country: US (occurrence: US)
  Receive Date: 20210312
  Receipt Date: 20210312
  Transmission Date: 20210420
  Serious: No
  Sender: FDA-Public Use
  Company Number: NVSC2021US056616

PATIENT
  Sex: Female

DRUGS (1)
  1. AFINITOR [Suspect]
     Active Substance: EVEROLIMUS
     Indication: CARCINOID SYNDROME
     Dosage: 5 MG, BID
     Route: 065
     Dates: start: 20201210

REACTIONS (2)
  - Glossodynia [Not Recovered/Not Resolved]
  - Dry mouth [Not Recovered/Not Resolved]
